FAERS Safety Report 10924759 (Version 2)
Quarter: 2015Q2

REPORT INFORMATION
  Report Type: Spontaneous
  Country: US (occurrence: US)
  Receive Date: 20150318
  Receipt Date: 20150524
  Transmission Date: 20150821
  Serious: No
  Sender: FDA-Public Use
  Company Number: US-JNJFOC-20140104469

PATIENT
  Age: 20 Year
  Sex: Male
  Weight: 97.52 kg

DRUGS (2)
  1. NIZORAL A-D [Suspect]
     Active Substance: KETOCONAZOLE
     Route: 061
  2. NIZORAL A-D [Suspect]
     Active Substance: KETOCONAZOLE
     Indication: ALOPECIA
     Route: 061
     Dates: start: 20131208

REACTIONS (3)
  - Erythema [Unknown]
  - Dermatitis [Not Recovered/Not Resolved]
  - Product use issue [Unknown]

NARRATIVE: CASE EVENT DATE: 20131225
